FAERS Safety Report 17907222 (Version 2)
Quarter: 2020Q3

REPORT INFORMATION
  Report Type: Spontaneous
  Country: JP (occurrence: JP)
  Receive Date: 20200617
  Receipt Date: 20200707
  Transmission Date: 20201103
  Serious: Yes (Disabling, Other)
  Sender: FDA-Public Use
  Company Number: JP-ROCHE-2621900

PATIENT
  Age: 85 Year
  Sex: Female

DRUGS (1)
  1. LUCENTIS [Suspect]
     Active Substance: RANIBIZUMAB
     Indication: RETINAL VEIN OCCLUSION
     Route: 031
     Dates: start: 20200602

REACTIONS (3)
  - Cerebral infarction [Recovered/Resolved with Sequelae]
  - General physical health deterioration [Unknown]
  - Thrombosis [Unknown]

NARRATIVE: CASE EVENT DATE: 20200607
